FAERS Safety Report 4487241-2 (Version None)
Quarter: 2004Q3

REPORT INFORMATION
  Report Type: 
  Country: None (occurrence: None)
  Receive Date: 20040921
  Receipt Date: 20040712
  Transmission Date: 20050211
  Serious: Yes (Hospitalization)
  Sender: FDA-Public Use
  Company Number: 163-20785-04070307 (0)

PATIENT
  Age: 47 Year
  Sex: Female
  Weight: 87.7 kg

DRUGS (7)
  1. THALOMID [Suspect]
     Indication: MULTIPLE MYELOMA
     Dosage: 200 MG, DAILY, ORAL
     Route: 048
     Dates: start: 20040703, end: 20040703
  2. BORTEZOMIB (UNKNOWN) [Suspect]
     Indication: MULTIPLE MYELOMA
     Dosage: 2 MG, INTRAVENOUS
     Route: 042
     Dates: start: 20040630, end: 20040630
  3. BORTEZOMIB (UNKNOWN) [Suspect]
     Indication: MULTIPLE MYELOMA
     Dosage: 2 MG, INTRAVENOUS
     Route: 042
     Dates: start: 20040703, end: 20040703
  4. ADRIAMYCIN PFS [Suspect]
     Indication: MULTIPLE MYELOMA
     Dosage: 18 MG, DAILY, INTRAVENOUS
     Route: 042
     Dates: start: 20040703, end: 20040703
  5. CYCLOPHOSPHAMIDE [Suspect]
     Indication: MULTIPLE MYELOMA
     Dosage: 724 MG, DAILY, INTRAVENOUS
     Route: 042
     Dates: start: 20040703, end: 20040703
  6. DEXAMETHASONE [Suspect]
     Indication: MULTIPLE MYELOMA
     Dosage: 40 MG, DAILY, ORAL
     Route: 048
     Dates: start: 20040702, end: 20040704
  7. ETOPOSIDE [Suspect]
     Indication: MULTIPLE MYELOMA
     Dosage: 72 MG, DAILY, INTRAVENOUS
     Route: 042
     Dates: start: 20040703, end: 20040703

REACTIONS (8)
  - BLOOD CREATINE PHOSPHOKINASE MB INCREASED [None]
  - COMA [None]
  - HYPERCALCAEMIA [None]
  - HYPERURICAEMIA [None]
  - HYPOKALAEMIA [None]
  - INTUBATION [None]
  - MYOCARDIAL INFARCTION [None]
  - RENAL FAILURE [None]
